FAERS Safety Report 11326685 (Version 1)
Quarter: 2015Q3

REPORT INFORMATION
  Report Type: Spontaneous
  Country: KR (occurrence: KR)
  Receive Date: 20150731
  Receipt Date: 20150731
  Transmission Date: 20151125
  Serious: Yes (Hospitalization)
  Sender: FDA-Public Use
  Company Number: KR-BAYER-2015-389277

PATIENT
  Age: 53 Year
  Sex: Female

DRUGS (1)
  1. ULTRAKON 300 [Suspect]
     Active Substance: IOPROMIDE
     Indication: COMPUTERISED TOMOGRAM ABDOMEN
     Dosage: 125 ML, ONCE
     Dates: start: 20150728, end: 20150728

REACTIONS (3)
  - Quadriplegia [Unknown]
  - Asthenia [Unknown]
  - Diplegia [Unknown]

NARRATIVE: CASE EVENT DATE: 20150728
